FAERS Safety Report 15969862 (Version 1)
Quarter: 2019Q1

REPORT INFORMATION
  Report Type: Report from Study
  Country: US (occurrence: US)
  Receive Date: 20190215
  Receipt Date: 20190215
  Transmission Date: 20190418
  Serious: No
  Sender: FDA-Public Use
  Company Number: US-AMAG PHARMACEUTICALS, INC.-AMAG201800728

PATIENT

DRUGS (3)
  1. VAGISIL ANTI ITCH ORIGINAL STRENGTH [Concomitant]
     Active Substance: BENZOCAINE\RESORCINOL
     Indication: VAGINAL DISCHARGE
     Dosage: UNK
     Route: 065
  2. MONISTAT [Concomitant]
     Active Substance: MICONAZOLE NITRATE
     Indication: VAGINAL DISCHARGE
     Dosage: UNK
     Route: 065
  3. MAKENA [Suspect]
     Active Substance: HYDROXYPROGESTERONE CAPROATE
     Indication: PREMATURE DELIVERY
     Dosage: 250 MG/ML, WEEKLY
     Route: 030
     Dates: start: 20171215

REACTIONS (6)
  - Ear pain [Unknown]
  - Abdominal pain [Not Recovered/Not Resolved]
  - Hypoaesthesia [Recovered/Resolved with Sequelae]
  - Fatigue [Recovered/Resolved]
  - Chest pain [Recovered/Resolved with Sequelae]
  - Ear congestion [Unknown]

NARRATIVE: CASE EVENT DATE: 20180203
